FAERS Safety Report 19795196 (Version 2)
Quarter: 2021Q3

REPORT INFORMATION
  Report Type: Report from Study
  Country: US (occurrence: US)
  Receive Date: 20210907
  Receipt Date: 20210928
  Transmission Date: 20211014
  Serious: Yes (Other)
  Sender: FDA-Public Use
  Company Number: US-IPSEN BIOPHARMACEUTICALS, INC.-2021-21553

PATIENT
  Sex: Male
  Weight: 95 kg

DRUGS (2)
  1. NEXIUM [Concomitant]
     Active Substance: ESOMEPRAZOLE MAGNESIUM
     Dosage: ORDER FROM APRIL
  2. SOMATULINE DEPOT [Suspect]
     Active Substance: LANREOTIDE ACETATE
     Indication: CARCINOID TUMOUR OF THE STOMACH
     Dosage: DEEP UNDER SKIN IN EXTERNAL QUADRANT OF BUTTOCKS
     Route: 058
     Dates: start: 2019

REACTIONS (2)
  - Nephrolithiasis [Recovering/Resolving]
  - Blood pressure increased [Recovering/Resolving]
